FAERS Safety Report 25147782 (Version 1)
Quarter: 2025Q2

REPORT INFORMATION
  Report Type: Report from Study
  Country: US (occurrence: US)
  Receive Date: 20250402
  Receipt Date: 20250402
  Transmission Date: 20250716
  Serious: Yes (Other)
  Sender: ALEXION PHARMACEUTICALS
  Company Number: US-ASTRAZENECA-202405USA002412US

PATIENT
  Age: 72 Year
  Weight: 82.086 kg

DRUGS (6)
  1. TEZEPELUMAB [Suspect]
     Active Substance: TEZEPELUMAB
  2. TEZEPELUMAB [Suspect]
     Active Substance: TEZEPELUMAB
  3. FLUAD NOS [Concomitant]
     Active Substance: INFLUENZA VIRUS VACCINE
  4. COVID-19 vaccine [Concomitant]
  5. MECLIZINE [Concomitant]
     Active Substance: MECLIZINE HYDROCHLORIDE
  6. PREDNISOLONE [Concomitant]
     Active Substance: PREDNISOLONE

REACTIONS (3)
  - Alopecia [Recovered/Resolved with Sequelae]
  - Dizziness [Unknown]
  - Headache [Unknown]
